FAERS Safety Report 10174821 (Version 2)
Quarter: 2014Q2

REPORT INFORMATION
  Report Type: Spontaneous
  Country: US (occurrence: US)
  Receive Date: 20140515
  Receipt Date: 20140522
  Transmission Date: 20141212
  Serious: Yes (Hospitalization, Other)
  Sender: FDA-Public Use
  Company Number: US-RB-065843-14

PATIENT
  Age: 81 Year
  Sex: Male

DRUGS (3)
  1. MUCINEX [Suspect]
     Indication: PRODUCT USED FOR UNKNOWN INDICATION
     Dosage: 1 TABLET IN MORNING AND 1 AT NIGHT; LAST TOOK ON 08-MAY-2014; AMOUNT USED: 13
     Route: 048
  2. WARFARIN [Suspect]
     Indication: PRODUCT USED FOR UNKNOWN INDICATION
     Dosage: TAKES REGULARLY
  3. CORICIDIN HBP [Concomitant]
     Indication: PRODUCT USED FOR UNKNOWN INDICATION

REACTIONS (5)
  - Haematochezia [Unknown]
  - Muscle spasms [Unknown]
  - International normalised ratio abnormal [Unknown]
  - Abdominal pain upper [Unknown]
  - Gait disturbance [Unknown]
